FAERS Safety Report 20579851 (Version 4)
Quarter: 2022Q3

REPORT INFORMATION
  Report Type: Spontaneous
  Country: CA (occurrence: CA)
  Receive Date: 20220310
  Receipt Date: 20220912
  Transmission Date: 20221026
  Serious: Yes (Other)
  Sender: FDA-Public Use
  Company Number: CA-PFIZER INC-2020503149

PATIENT
  Age: 56 Year
  Sex: Female
  Weight: 102 kg

DRUGS (7)
  1. RUXIENCE [Suspect]
     Active Substance: RITUXIMAB-PVVR
     Indication: Systemic lupus erythematosus
     Dosage: 1000 MG, EVERY 3 MONTHS
     Route: 042
     Dates: start: 20210114
  2. RUXIENCE [Suspect]
     Active Substance: RITUXIMAB-PVVR
     Indication: Rheumatoid arthritis
     Dosage: 1000 MG, Q 3-4 MONTHS
     Route: 042
     Dates: start: 20210114, end: 20220326
  3. RUXIENCE [Suspect]
     Active Substance: RITUXIMAB-PVVR
     Dosage: 1000 MG, EVERY 3 - 4 MONTHS
     Route: 042
     Dates: start: 20210521
  4. RUXIENCE [Suspect]
     Active Substance: RITUXIMAB-PVVR
     Dosage: 1000 MG, EVERY 4 MONTHS
     Route: 042
     Dates: start: 20210928
  5. RUXIENCE [Suspect]
     Active Substance: RITUXIMAB-PVVR
     Dosage: 1000 MG, Q 3-4 MONTHS
     Route: 042
     Dates: start: 20220326
  6. PLAQUENIL [Concomitant]
     Active Substance: HYDROXYCHLOROQUINE SULFATE
     Dosage: 400 MG, 1X/DAY
     Route: 048
  7. TYLENOL [Concomitant]
     Active Substance: ACETAMINOPHEN
     Dosage: UNK, AS NEEDED, PRN

REACTIONS (8)
  - Cerebrovascular accident [Recovering/Resolving]
  - Off label use [Unknown]
  - Off label use [Unknown]
  - Intentional product use issue [Unknown]
  - Product dose omission issue [Unknown]
  - Headache [Unknown]
  - Musculoskeletal stiffness [Unknown]
  - Back disorder [Recovering/Resolving]

NARRATIVE: CASE EVENT DATE: 20210114
